FAERS Safety Report 17576919 (Version 2)
Quarter: 2020Q1

REPORT INFORMATION
  Report Type: Spontaneous
  Country: NL (occurrence: NL)
  Receive Date: 20200324
  Receipt Date: 20200330
  Transmission Date: 20200409
  Serious: Yes (Other)
  Sender: FDA-Public Use
  Company Number: NL-ASTRAZENECA-2020SE38625

PATIENT
  Sex: Female

DRUGS (11)
  1. NIFEDIPINE RETARD [Suspect]
     Active Substance: NIFEDIPINE
     Indication: ISCHAEMIA
     Dosage: 30 MG, UNKNOWN30.0MG UNKNOWN
     Route: 065
  2. NIFEDIPINE RETARD [Suspect]
     Active Substance: NIFEDIPINE
     Indication: ISCHAEMIA
     Dosage: 20 MG, UNKNOWN20.0MG UNKNOWN
     Route: 065
  3. PANTOZOL [Concomitant]
     Active Substance: PANTOPRAZOLE SODIUM
     Indication: PRODUCT USED FOR UNKNOWN INDICATION
     Dosage: 40 MG, BID
     Route: 065
     Dates: start: 2008
  4. LEVOCETIRIZINE DIHYDROCHLORIDE. [Suspect]
     Active Substance: LEVOCETIRIZINE DIHYDROCHLORIDE
     Indication: NASAL CONGESTION
     Dosage: 5.0MG UNKNOWN
     Route: 065
  5. ESOMEPRAZOLE. [Suspect]
     Active Substance: ESOMEPRAZOLE MAGNESIUM
     Indication: GASTROINTESTINAL DISORDER PROPHYLAXIS
     Dosage: 20 MG, BID
     Route: 065
     Dates: start: 2014
  6. NIFEDIPINE RETARD [Suspect]
     Active Substance: NIFEDIPINE
     Indication: ISCHAEMIA
     Dosage: UNK (DECREASED) UNKNOWN
     Route: 065
  7. CARBASALATE CALCIUM [Suspect]
     Active Substance: CARBASPIRIN CALCIUM
     Indication: PRODUCT USED FOR UNKNOWN INDICATION
     Dosage: 100 MG, UNKNOWN (SACHETS)100.0MG UNKNOWN
     Route: 065
  8. SILDENAFIL. [Suspect]
     Active Substance: SILDENAFIL
     Indication: PRODUCT USED FOR UNKNOWN INDICATION
     Dosage: 20 MG, UNKNOWN20.0MG UNKNOWN
     Route: 065
     Dates: start: 2014
  9. NIFEDIPINE RETARD [Suspect]
     Active Substance: NIFEDIPINE
     Indication: ISCHAEMIA
     Dosage: 10 MG, UNKNOWN10.0MG UNKNOWN
     Route: 065
     Dates: start: 2001
  10. NEXIUM [Concomitant]
     Active Substance: ESOMEPRAZOLE MAGNESIUM
     Indication: PRODUCT USED FOR UNKNOWN INDICATION
     Dosage: 40 MG, BID
     Route: 065
     Dates: start: 2009
  11. ASCAL [Concomitant]
     Indication: PRODUCT USED FOR UNKNOWN INDICATION
     Dosage: 100 MG, UNKNOWN
     Route: 065
     Dates: start: 2005

REACTIONS (44)
  - Anaemia [Unknown]
  - Nocturia [Unknown]
  - Discomfort [Unknown]
  - Palpitations [Unknown]
  - Blood sodium decreased [Unknown]
  - Fatigue [Unknown]
  - Dyspepsia [Unknown]
  - Skin infection [Unknown]
  - Agranulocytosis [Unknown]
  - Pain in extremity [Unknown]
  - Oedema peripheral [Unknown]
  - Muscle twitching [Unknown]
  - Muscle disorder [Unknown]
  - Joint effusion [Unknown]
  - Contusion [Unknown]
  - Myalgia [Unknown]
  - Dry mouth [Unknown]
  - Sleep disorder [Unknown]
  - Gastrooesophageal sphincter insufficiency [Not Recovered/Not Resolved]
  - Gastrointestinal haemorrhage [Unknown]
  - Systemic scleroderma [Not Recovered/Not Resolved]
  - White blood cell count decreased [Unknown]
  - Dysphagia [Unknown]
  - Stomach mass [Unknown]
  - Abdominal pain upper [Unknown]
  - Platelet count decreased [Unknown]
  - Paraesthesia [Unknown]
  - Abdominal distension [Unknown]
  - Necrosis [Unknown]
  - Nasal congestion [Unknown]
  - Gastrointestinal disorder [Unknown]
  - Menorrhagia [Unknown]
  - Skin oedema [Unknown]
  - Nasal inflammation [Unknown]
  - Functional gastrointestinal disorder [Unknown]
  - Constipation [Unknown]
  - Insomnia [Unknown]
  - Flatulence [Unknown]
  - Therapeutic product effect incomplete [Not Recovered/Not Resolved]
  - Muscle spasms [Unknown]
  - Asthenia [Unknown]
  - Eructation [Unknown]
  - Muscular weakness [Unknown]
  - Arthralgia [Unknown]
